FAERS Safety Report 5150897-5 (Version None)
Quarter: 2006Q4

REPORT INFORMATION
  Report Type: 
  Country: None (occurrence: None)
  Receive Date: 20061114
  Receipt Date: 20061012
  Transmission Date: 20070319
  Serious: Yes (Hospitalization)
  Sender: FDA-Public Use
  Company Number: US-ROXANE LABORATORIES, INC-2006-BP-11959RO

PATIENT
  Sex: Male
  Weight: 82 kg

DRUGS (13)
  1. PREDNISONE TABLETS USP, 20MG [Suspect]
     Indication: DEMYELINATING POLYNEUROPATHY
     Dosage: 60 MG DAILY
     Route: 048
     Dates: start: 20050901, end: 20051220
  2. VIRAMUNE [Concomitant]
     Indication: ACQUIRED IMMUNODEFICIENCY SYNDROME
     Route: 048
     Dates: start: 19990101
  3. ACYCLOVIR [Concomitant]
     Indication: ACQUIRED IMMUNODEFICIENCY SYNDROME
     Route: 048
     Dates: start: 19990101
  4. MORPHINE [Concomitant]
     Indication: PAIN
  5. MEPERIDINE HCL [Concomitant]
     Indication: PAIN
  6. VALIUM [Concomitant]
     Indication: PAIN
     Route: 048
  7. PROSCAR [Concomitant]
     Route: 048
  8. TRIZIVIR [Concomitant]
     Indication: ACQUIRED IMMUNODEFICIENCY SYNDROME
     Route: 048
  9. LASIX [Concomitant]
     Route: 048
  10. ANDROGEL [Concomitant]
     Dosage: 1% (50 MG) TO SKIN DAILY
     Route: 061
  11. B-12 [Concomitant]
     Dosage: 1 MG IM WEEKLY ON MONDAYS
     Route: 030
  12. PRILOSEC [Concomitant]
     Route: 048
  13. ZYPREXA [Concomitant]
     Dosage: 2.5 MG QHS AS NEEDED
     Route: 048

REACTIONS (45)
  - ABDOMINAL DISTENSION [None]
  - ABDOMINAL PAIN [None]
  - ACTIVITIES OF DAILY LIVING IMPAIRED [None]
  - AGEUSIA [None]
  - ANAEMIA [None]
  - ANOREXIA [None]
  - ASPARTATE AMINOTRANSFERASE INCREASED [None]
  - ATRIAL FIBRILLATION [None]
  - BLINDNESS TRANSIENT [None]
  - BLOOD GLUCOSE INCREASED [None]
  - BLOOD POTASSIUM DECREASED [None]
  - BONE MARROW FAILURE [None]
  - CELLULITIS [None]
  - CENTRAL OBESITY [None]
  - CONDITION AGGRAVATED [None]
  - DEAFNESS TRANSITORY [None]
  - DELIRIUM [None]
  - DRUG INTOLERANCE [None]
  - ERYTHEMA [None]
  - FIBRIN D DIMER INCREASED [None]
  - FLUID RETENTION [None]
  - GASTROOESOPHAGEAL REFLUX DISEASE [None]
  - HAEMODYNAMIC INSTABILITY [None]
  - HYPERTENSION [None]
  - HYPOCHLORAEMIA [None]
  - HYPOTHYROIDISM [None]
  - LIPOHYPERTROPHY [None]
  - LUNG NEOPLASM [None]
  - MALAISE [None]
  - MYOCARDIAL INFARCTION [None]
  - NAUSEA [None]
  - OEDEMA [None]
  - PSYCHOTIC DISORDER [None]
  - PULMONARY EMBOLISM [None]
  - PULMONARY HYPERTENSION [None]
  - PYREXIA [None]
  - RALES [None]
  - RENAL FAILURE [None]
  - RENAL IMPAIRMENT [None]
  - RIGHT VENTRICULAR FAILURE [None]
  - TACHYCARDIA [None]
  - THERAPY NON-RESPONDER [None]
  - THROMBOCYTOPENIA [None]
  - THYROID DISORDER [None]
  - WEIGHT INCREASED [None]
